FAERS Safety Report 12140681 (Version 1)
Quarter: 2016Q1

REPORT INFORMATION
  Report Type: Spontaneous
  Country: US (occurrence: None)
  Receive Date: 20160302
  Receipt Date: 20160302
  Transmission Date: 20160526
  Serious: Yes (Other)
  Sender: FDA-Public Use
  Company Number: None

PATIENT
  Age: 51 Year
  Sex: Female
  Weight: 91.63 kg

DRUGS (32)
  1. BIOTIEN [Concomitant]
  2. FIORICET [Concomitant]
     Active Substance: ACETAMINOPHEN\BUTALBITAL\CAFFEINE
  3. INCRUSE ELLIPTA [Suspect]
     Active Substance: UMECLIDINIUM BROMIDE
     Indication: EMPHYSEMA
     Dosage: ^INHALE 1 PUFF ONCE DAILY AT SAME TIME EVERY DAY^ ONCE DAILY BY MOUTH-INHALATION
     Route: 055
     Dates: start: 20160118, end: 20160119
  4. PROPRANOL [Concomitant]
     Active Substance: PROPRANOLOL HYDROCHLORIDE
  5. LISINIPROL [Concomitant]
  6. XANAX [Concomitant]
     Active Substance: ALPRAZOLAM
  7. INCRUSE ELLIPTA [Suspect]
     Active Substance: UMECLIDINIUM BROMIDE
     Indication: CHRONIC OBSTRUCTIVE PULMONARY DISEASE
     Dosage: ^INHALE 1 PUFF ONCE DAILY AT SAME TIME EVERY DAY^ ONCE DAILY BY MOUTH-INHALATION
     Route: 055
     Dates: start: 20160118, end: 20160119
  8. ZANAFLEX [Concomitant]
     Active Substance: TIZANIDINE HYDROCHLORIDE
  9. COLACE [Concomitant]
     Active Substance: DOCUSATE SODIUM
  10. LASIX [Concomitant]
     Active Substance: FUROSEMIDE
  11. T.E.N.S. [Concomitant]
  12. HEATING PAD [Concomitant]
  13. MORPHINE SULFATE EXTENDED-RELEASE [Concomitant]
     Active Substance: MORPHINE SULFATE
  14. MORPHINE [Concomitant]
     Active Substance: MORPHINE
  15. ZOLOFT [Concomitant]
     Active Substance: SERTRALINE HYDROCHLORIDE
  16. EPIPEN [Concomitant]
     Active Substance: EPINEPHRINE
  17. AMBIEN CR [Concomitant]
     Active Substance: ZOLPIDEM TARTRATE
  18. IMITREX [Concomitant]
     Active Substance: SUMATRIPTAN SUCCINATE
  19. FLONASE [Concomitant]
     Active Substance: FLUTICASONE PROPIONATE
  20. XOPENEX [Concomitant]
     Active Substance: LEVALBUTEROL HYDROCHLORIDE
  21. POTASSIUN [Concomitant]
  22. TOPAMAX [Concomitant]
     Active Substance: TOPIRAMATE
  23. B-STRESS COMPLEX [Concomitant]
  24. VITAMIN D [Concomitant]
     Active Substance: CHOLECALCIFEROL
  25. CELEBREX [Concomitant]
     Active Substance: CELECOXIB
  26. ZOCOR [Concomitant]
     Active Substance: SIMVASTATIN
  27. MULTIVITAMIN [Concomitant]
     Active Substance: VITAMINS
  28. BOTOX [Concomitant]
     Active Substance: ONABOTULINUMTOXINA
  29. FOSAMAX [Concomitant]
     Active Substance: ALENDRONATE SODIUM
  30. IRON [Concomitant]
     Active Substance: IRON
  31. B-12 CYNOCABOCULUM [Concomitant]
  32. REAGLEN [Concomitant]

REACTIONS (4)
  - Dizziness [None]
  - Migraine [None]
  - Documented hypersensitivity to administered product [None]
  - Hypersensitivity [None]

NARRATIVE: CASE EVENT DATE: 20160118
